FAERS Safety Report 21861976 (Version 2)
Quarter: 2023Q1

REPORT INFORMATION
  Report Type: Report from Study
  Country: BR (occurrence: BR)
  Receive Date: 20230113
  Receipt Date: 20230125
  Transmission Date: 20230417
  Serious: Yes (Hospitalization)
  Sender: FDA-Public Use
  Company Number: BR-BIOGEN-2023BI01181273

PATIENT
  Age: 43 Year
  Sex: Male
  Weight: 76 kg

DRUGS (1)
  1. TYSABRI [Suspect]
     Active Substance: NATALIZUMAB
     Indication: Multiple sclerosis
     Route: 050
     Dates: start: 20160901

REACTIONS (3)
  - Malaise [Unknown]
  - Abnormal behaviour [Unknown]
  - Toothache [Unknown]

NARRATIVE: CASE EVENT DATE: 20221101
